FAERS Safety Report 23473316 (Version 1)
Quarter: 2024Q1

REPORT INFORMATION
  Report Type: Spontaneous
  Country: NL (occurrence: NL)
  Receive Date: 20240203
  Receipt Date: 20240203
  Transmission Date: 20240410
  Serious: Yes (Death, Other)
  Sender: FDA-Public Use
  Company Number: NL-AMGEN-NLDSP2024019560

PATIENT

DRUGS (1)
  1. PANITUMUMAB [Suspect]
     Active Substance: PANITUMUMAB
     Indication: Rectal cancer
     Dosage: UNK
     Route: 065

REACTIONS (9)
  - Death [Fatal]
  - Rectal cancer metastatic [Unknown]
  - Haematochezia [Unknown]
  - Mucous stools [Unknown]
  - Libido decreased [Unknown]
  - Constipation [Unknown]
  - Anxiety [Unknown]
  - Diarrhoea [Recovering/Resolving]
  - Fatigue [Unknown]
